FAERS Safety Report 11423447 (Version 2)
Quarter: 2015Q4

REPORT INFORMATION
  Report Type: Spontaneous
  Country: US (occurrence: US)
  Receive Date: 20150827
  Receipt Date: 20151020
  Transmission Date: 20160304
  Serious: No
  Sender: FDA-Public Use
  Company Number: US-G+W LABORATORIES-1041421

PATIENT
  Sex: Female

DRUGS (3)
  1. METRONIDAZOLE. [Suspect]
     Active Substance: METRONIDAZOLE
     Indication: ROSACEA
     Route: 061
     Dates: start: 201506, end: 20150808
  2. NEUTROGENA CLEAR PORE DAILY SCRUB [Concomitant]
     Active Substance: BENZOYL PEROXIDE
     Route: 061
     Dates: start: 201402
  3. NEUTROGENA AGE SHIELD FACE SPF 110 [Concomitant]
     Active Substance: AVOBENZONE\HOMOSALATE\OCTISALATE\OCTOCRYLENE\OXYBENZONE
     Route: 061
     Dates: start: 201308

REACTIONS (1)
  - Disease progression [Unknown]

NARRATIVE: CASE EVENT DATE: 201506
